FAERS Safety Report 11946347 (Version 1)
Quarter: 2016Q1

REPORT INFORMATION
  Report Type: Spontaneous
  Country: US (occurrence: US)
  Receive Date: 20160125
  Receipt Date: 20160125
  Transmission Date: 20160526
  Serious: No
  Sender: FDA-Public Use
  Company Number: US-JNJFOC-20151223966

PATIENT
  Sex: Male
  Weight: 88.45 kg

DRUGS (2)
  1. MENS ROGAINE EXTRA STRENGTH [Suspect]
     Active Substance: MINOXIDIL
     Route: 061
  2. MENS ROGAINE EXTRA STRENGTH [Suspect]
     Active Substance: MINOXIDIL
     Indication: HAIR GROWTH ABNORMAL
     Dosage: LITTLE DOB
     Route: 061
     Dates: end: 20151227

REACTIONS (5)
  - Skin irritation [Recovering/Resolving]
  - Pain of skin [Recovering/Resolving]
  - Inappropriate schedule of drug administration [Recovering/Resolving]
  - Erythema [Recovering/Resolving]
  - Off label use [Recovering/Resolving]
